FAERS Safety Report 5033095-5 (Version None)
Quarter: 2006Q2

REPORT INFORMATION
  Report Type: 
  Country: None (occurrence: None)
  Receive Date: 20060620
  Receipt Date: 20060531
  Transmission Date: 20061013
  Serious: Yes (Death, Hospitalization)
  Sender: FDA-Public Use
  Company Number: US200606000314

PATIENT
  Sex: Male

DRUGS (2)
  1. FORTEO [Suspect]
     Indication: OSTEOPOROSIS
     Dates: start: 20050101, end: 20060123
  2. FORTEO [Concomitant]

REACTIONS (5)
  - ATRIAL FIBRILLATION [None]
  - DEMENTIA [None]
  - HEPATITIS [None]
  - ORAL INTAKE REDUCED [None]
  - PNEUMONIA [None]
